FAERS Safety Report 12308030 (Version 9)
Quarter: 2016Q3

REPORT INFORMATION
  Report Type: Spontaneous
  Country: US (occurrence: US)
  Receive Date: 20160426
  Receipt Date: 20160829
  Transmission Date: 20161109
  Serious: Yes (Death, Hospitalization)
  Sender: FDA-Public Use
  Company Number: US-CELGENEUS-USA-2016021029

PATIENT
  Age: 85 Year
  Sex: Male
  Weight: 81 kg

DRUGS (47)
  1. DEMCIZUMAB [Suspect]
     Active Substance: DEMCIZUMAB
     Indication: PANCREATIC CARCINOMA METASTATIC
     Route: 041
     Dates: start: 20151216, end: 20151216
  2. HEPARIN PORCINE [Concomitant]
     Indication: DYSPNOEA
     Route: 065
     Dates: start: 20160204
  3. HEPARIN PORCINE [Concomitant]
     Indication: CARDIAC FAILURE CONGESTIVE
  4. MANNATECH OPTIMAL SUPPORT [Concomitant]
     Indication: SUPPLEMENTATION THERAPY
     Route: 065
     Dates: start: 2000
  5. PREDNISONE. [Concomitant]
     Active Substance: PREDNISONE
     Indication: RASH MACULO-PAPULAR
  6. ASPIRIN. [Concomitant]
     Active Substance: ASPIRIN
     Indication: CHEST DISCOMFORT
     Route: 065
     Dates: start: 2013, end: 20151229
  7. COLACE [Concomitant]
     Active Substance: DOCUSATE SODIUM
     Indication: CONSTIPATION
     Route: 065
     Dates: start: 20160204, end: 20160209
  8. ABRAXANE [Suspect]
     Active Substance: PACLITAXEL
     Indication: PANCREATIC CARCINOMA METASTATIC
     Route: 041
     Dates: start: 20151216, end: 20151216
  9. GEMCITABINE [Suspect]
     Active Substance: GEMCITABINE\GEMCITABINE HYDROCHLORIDE
     Route: 041
     Dates: start: 20151223, end: 20151223
  10. DEMCIZUMAB [Suspect]
     Active Substance: DEMCIZUMAB
     Route: 041
     Dates: start: 20151230, end: 20151230
  11. HEPARIN PORCINE [Concomitant]
     Indication: ORTHOPNOEA
     Route: 065
     Dates: start: 20160201, end: 20160203
  12. CARVEDILOL. [Concomitant]
     Active Substance: CARVEDILOL
     Indication: BRAIN NATRIURETIC PEPTIDE INCREASED
     Route: 048
     Dates: start: 20160119
  13. CARVEDILOL. [Concomitant]
     Active Substance: CARVEDILOL
     Route: 048
     Dates: start: 20160204
  14. ECOTRIN [Concomitant]
     Active Substance: ASPIRIN
     Indication: CHEST DISCOMFORT
     Route: 065
     Dates: start: 20160111, end: 20160111
  15. ABRAXANE [Suspect]
     Active Substance: PACLITAXEL
     Route: 041
     Dates: start: 20151223, end: 20151223
  16. HEPARIN PORCINE [Concomitant]
     Indication: THROMBOSIS PROPHYLAXIS
  17. MANNATECH AMBROTOSE COMPLEX [Concomitant]
     Indication: SUPPLEMENTATION THERAPY
     Route: 065
     Dates: start: 2000
  18. MILK OF MAGNESIA [Concomitant]
     Active Substance: MAGNESIUM HYDROXIDE
     Indication: CONSTIPATION
     Route: 065
     Dates: start: 20151219, end: 20151222
  19. OMEPRAZOLE. [Concomitant]
     Active Substance: OMEPRAZOLE
     Indication: OESOPHAGEAL STENOSIS
  20. ASPIRIN. [Concomitant]
     Active Substance: ASPIRIN
     Indication: ACUTE MYOCARDIAL INFARCTION
     Route: 048
     Dates: start: 20160209, end: 20160209
  21. ECOTRIN [Concomitant]
     Active Substance: ASPIRIN
     Indication: ORTHOPNOEA
  22. ABRAXANE [Suspect]
     Active Substance: PACLITAXEL
     Route: 041
     Dates: start: 20151230, end: 20151230
  23. OMEPRAZOLE. [Concomitant]
     Active Substance: OMEPRAZOLE
     Indication: OESOPHAGEAL STENOSIS
     Route: 065
     Dates: start: 19960520
  24. ASPIRIN. [Concomitant]
     Active Substance: ASPIRIN
     Indication: ORTHOPNOEA
     Route: 065
     Dates: start: 20150204
  25. ASPIRIN. [Concomitant]
     Active Substance: ASPIRIN
     Indication: HYPERTENSION
     Route: 048
     Dates: start: 20160110, end: 20160110
  26. ECOTRIN [Concomitant]
     Active Substance: ASPIRIN
     Indication: PROPHYLAXIS
  27. GEMCITABINE [Suspect]
     Active Substance: GEMCITABINE\GEMCITABINE HYDROCHLORIDE
     Route: 041
     Dates: start: 20160113, end: 20160113
  28. DEMCIZUMAB [Suspect]
     Active Substance: DEMCIZUMAB
     Route: 041
     Dates: start: 20160127, end: 20160127
  29. ASPIRIN. [Concomitant]
     Active Substance: ASPIRIN
     Indication: CARDIOVASCULAR EVENT PROPHYLAXIS
     Route: 048
     Dates: start: 20160111, end: 20160111
  30. INSULIN [Concomitant]
     Active Substance: INSULIN NOS
     Indication: THROMBOSIS PROPHYLAXIS
     Route: 065
     Dates: start: 20160111, end: 20160111
  31. INSULIN [Concomitant]
     Active Substance: INSULIN NOS
     Indication: ORTHOPNOEA
     Route: 065
     Dates: start: 20160204, end: 20160209
  32. ABRAXANE [Suspect]
     Active Substance: PACLITAXEL
     Route: 041
     Dates: start: 20160120, end: 20160120
  33. ABRAXANE [Suspect]
     Active Substance: PACLITAXEL
     Route: 041
     Dates: start: 20160127, end: 20160127
  34. GEMCITABINE [Suspect]
     Active Substance: GEMCITABINE\GEMCITABINE HYDROCHLORIDE
     Indication: PANCREATIC CARCINOMA METASTATIC
     Route: 041
     Dates: start: 20151216, end: 20151216
  35. GEMCITABINE [Suspect]
     Active Substance: GEMCITABINE\GEMCITABINE HYDROCHLORIDE
     Route: 041
     Dates: start: 20160127, end: 20160127
  36. HEPARIN PORCINE [Concomitant]
     Indication: CHEST DISCOMFORT
     Route: 065
     Dates: start: 20160111, end: 20160111
  37. MANNATECH NUTRIVERUS [Concomitant]
     Indication: SUPPLEMENTATION THERAPY
     Route: 065
     Dates: start: 2000
  38. OXYGEN. [Concomitant]
     Active Substance: OXYGEN
     Indication: PRODUCT USED FOR UNKNOWN INDICATION
     Route: 065
  39. GEMCITABINE [Suspect]
     Active Substance: GEMCITABINE\GEMCITABINE HYDROCHLORIDE
     Route: 041
     Dates: start: 20160120, end: 20160120
  40. MANNATECH PLUS [Concomitant]
     Indication: SUPPLEMENTATION THERAPY
     Route: 065
     Dates: start: 2000
  41. METFORMIN [Concomitant]
     Active Substance: METFORMIN HYDROCHLORIDE
     Indication: TYPE 2 DIABETES MELLITUS
     Route: 065
     Dates: start: 20150809
  42. SENNA [Concomitant]
     Active Substance: SENNA LEAF\SENNOSIDES\SENNOSIDES A AND B
     Indication: CONSTIPATION
     Route: 065
     Dates: start: 20151219
  43. LOSARTAN. [Concomitant]
     Active Substance: LOSARTAN
     Indication: HYPERTENSION
     Route: 048
     Dates: start: 20100228
  44. ABRAXANE [Suspect]
     Active Substance: PACLITAXEL
     Route: 041
     Dates: start: 20160113, end: 20160113
  45. GEMCITABINE [Suspect]
     Active Substance: GEMCITABINE\GEMCITABINE HYDROCHLORIDE
     Route: 041
     Dates: start: 20151230, end: 20151230
  46. ATORVASTATIN [Concomitant]
     Active Substance: ATORVASTATIN
     Indication: HYPERCHOLESTEROLAEMIA
     Dosage: 50 MILLIGRAM
     Route: 065
     Dates: start: 20140523
  47. PREDNISONE. [Concomitant]
     Active Substance: PREDNISONE
     Indication: RASH MACULO-PAPULAR
     Route: 065
     Dates: start: 20160112, end: 20160113

REACTIONS (4)
  - Cardiac failure congestive [Recovered/Resolved]
  - Angina pectoris [Recovered/Resolved]
  - Dyspnoea [Recovered/Resolved]
  - Acute myocardial infarction [Fatal]

NARRATIVE: CASE EVENT DATE: 20160127
